FAERS Safety Report 11297906 (Version 1)
Quarter: 2015Q3

REPORT INFORMATION
  Report Type: Spontaneous
  Country: US (occurrence: US)
  Receive Date: 20150722
  Receipt Date: 20150722
  Transmission Date: 20151125
  Serious: No
  Sender: FDA-Public Use
  Company Number: US-ELI_LILLY_AND_COMPANY-US201006003788

PATIENT
  Sex: Male

DRUGS (5)
  1. INSULIN [Concomitant]
     Active Substance: INSULIN NOS
     Dosage: UNK, UNK
  2. SYNTHROID [Concomitant]
     Active Substance: LEVOTHYROXINE SODIUM
     Dosage: UNK, UNK
  3. HUMATROPE [Suspect]
     Active Substance: SOMATROPIN
     Indication: GROWTH HORMONE DEFICIENCY
     Dosage: 10 U, DAILY (1/D)
  4. ANDROGEL [Concomitant]
     Active Substance: TESTOSTERONE
     Dosage: 10 G, UNK
  5. CORTEF [Concomitant]
     Active Substance: HYDROCORTISONE
     Dosage: 1 D/F, DAILY (1/D)

REACTIONS (2)
  - Oral disorder [Recovered/Resolved]
  - Tongue neoplasm benign [Recovered/Resolved]
